FAERS Safety Report 20977435 (Version 1)
Quarter: 2022Q2

REPORT INFORMATION
  Report Type: Report from Study
  Country: US (occurrence: US)
  Receive Date: 20220617
  Receipt Date: 20220617
  Transmission Date: 20220720
  Serious: Yes (Death)
  Sender: FDA-Public Use
  Company Number: US-ABBVIE-22K-163-4306472-00

PATIENT
  Age: 68 Year
  Sex: Male
  Weight: 95 kg

DRUGS (1)
  1. IMBRUVICA [Suspect]
     Active Substance: IBRUTINIB
     Indication: Chronic lymphocytic leukaemia
     Route: 048
     Dates: start: 20210121

REACTIONS (5)
  - Diabetes mellitus [Fatal]
  - Hyperglycaemia [Fatal]
  - COVID-19 [Fatal]
  - Chronic lymphocytic leukaemia [Fatal]
  - Hypertension [Fatal]

NARRATIVE: CASE EVENT DATE: 20220203
